FAERS Safety Report 17428143 (Version 1)
Quarter: 2020Q1

REPORT INFORMATION
  Report Type: Spontaneous
  Country: US (occurrence: US)
  Receive Date: 20200131
  Receipt Date: 20200131
  Transmission Date: 20200409
  Serious: No
  Sender: FDA-Public Use
  Company Number: None

PATIENT
  Age: 79 Year
  Sex: Female
  Weight: 35.38 kg

DRUGS (2)
  1. FORTEO [Suspect]
     Active Substance: TERIPARATIDE
     Indication: OSTEOPOROTIC FRACTURE
     Dosage: AS DIRECTED
     Route: 058
     Dates: start: 201805
  2. FORTEO [Suspect]
     Active Substance: TERIPARATIDE
     Indication: PARKINSON^S DISEASE
     Dosage: AS DIRECTED
     Route: 058
     Dates: start: 201805

REACTIONS (1)
  - Death [None]
